FAERS Safety Report 10087481 (Version 1)
Quarter: 2014Q2

REPORT INFORMATION
  Report Type: Spontaneous
  Country: US (occurrence: US)
  Receive Date: 20140418
  Receipt Date: 20140418
  Transmission Date: 20141212
  Serious: No
  Sender: FDA-Public Use
  Company Number: US-PURDUE-USA-2013-0107708

PATIENT
  Sex: Female

DRUGS (1)
  1. OXYCODONE HYDROCHLORIDE (SIMILAR TO NDA 22-272) [Suspect]
     Indication: UNEVALUABLE EVENT
     Dosage: 20 MG, UNK
     Route: 048
     Dates: start: 201212

REACTIONS (2)
  - Drug effect increased [Unknown]
  - Wrong technique in drug usage process [Unknown]
